FAERS Safety Report 9344170 (Version 2)
Quarter: 2013Q3

REPORT INFORMATION
  Report Type: Spontaneous
  Country: JP (occurrence: JP)
  Receive Date: 20130612
  Receipt Date: 20130715
  Transmission Date: 20140515
  Serious: Yes (Hospitalization)
  Sender: FDA-Public Use
  Company Number: JP-NOVOPROD-379988

PATIENT
  Age: 82 Year
  Sex: Female

DRUGS (2)
  1. NOVORAPID CHU INNOLET [Suspect]
     Indication: TYPE 2 DIABETES MELLITUS
     Dosage: 34 IU, QD (16-12-6 )
     Route: 058
  2. INSULIN GLARGINE [Suspect]
     Indication: TYPE 2 DIABETES MELLITUS
     Dosage: 16 IU, QD
     Route: 058

REACTIONS (2)
  - Injection site mass [Unknown]
  - Diabetes mellitus inadequate control [Recovered/Resolved]
